FAERS Safety Report 7560971-1 (Version None)
Quarter: 2011Q2

REPORT INFORMATION
  Report Type: 
  Country: None (occurrence: None)
  Receive Date: 20110620
  Receipt Date: 20110620
  Transmission Date: 20111010
  Serious: Yes (Other)
  Sender: FDA-Public Use
  Company Number: None

PATIENT
  Age: 39 Year
  Sex: Female
  Weight: 60.782 kg

DRUGS (1)
  1. MIRENA [Suspect]
     Indication: CONTRACEPTION
     Dates: start: 20091101, end: 20110520

REACTIONS (11)
  - SINUS HEADACHE [None]
  - SELECTIVE IGG SUBCLASS DEFICIENCY [None]
  - OVARIAN CYST [None]
  - SINUSITIS [None]
  - ANXIETY [None]
  - UPPER-AIRWAY COUGH SYNDROME [None]
  - WEIGHT INCREASED [None]
  - TINNITUS [None]
  - ABDOMINAL DISTENSION [None]
  - BALANCE DISORDER [None]
  - HYPOGAMMAGLOBULINAEMIA [None]
